FAERS Safety Report 15299260 (Version 2)
Quarter: 2018Q4

REPORT INFORMATION
  Report Type: Report from Study
  Country: GB (occurrence: GB)
  Receive Date: 20180821
  Receipt Date: 20181120
  Transmission Date: 20190204
  Serious: Yes (Hospitalization)
  Sender: FDA-Public Use
  Company Number: GB-EMD SERONO-9040411

PATIENT
  Sex: Female

DRUGS (1)
  1. REBIF [Suspect]
     Active Substance: INTERFERON BETA-1A
     Indication: MULTIPLE SCLEROSIS
     Dosage: CARTRIDGES
     Route: 058
     Dates: start: 20111107

REACTIONS (4)
  - Ear infection [Unknown]
  - Eye infection [Unknown]
  - Decubitus ulcer [Unknown]
  - Hypertonic bladder [Unknown]
